FAERS Safety Report 6594365-2 (Version None)
Quarter: 2010Q1

REPORT INFORMATION
  Report Type: 
  Country: None (occurrence: None)
  Receive Date: 20100222
  Receipt Date: 20100217
  Transmission Date: 20100710
  Serious: Yes (Hospitalization)
  Sender: FDA-Public Use
  Company Number: A0796468A

PATIENT
  Age: 51 Year
  Sex: Female

DRUGS (1)
  1. AVANDIA [Suspect]
     Dosage: 8MG PER DAY
     Route: 048
     Dates: start: 20030306, end: 20080428

REACTIONS (7)
  - CEREBROVASCULAR ACCIDENT [None]
  - HEADACHE [None]
  - MENTAL IMPAIRMENT [None]
  - MOBILITY DECREASED [None]
  - PARALYSIS [None]
  - SPEECH DISORDER [None]
  - VISUAL IMPAIRMENT [None]
